FAERS Safety Report 24671616 (Version 2)
Quarter: 2024Q4

REPORT INFORMATION
  Report Type: Spontaneous
  Country: DE (occurrence: DE)
  Receive Date: 20241127
  Receipt Date: 20241206
  Transmission Date: 20250114
  Serious: Yes (Hospitalization, Other)
  Sender: NOVARTIS
  Company Number: DE-002147023-NVSC2024DE225614

PATIENT
  Age: 43 Year
  Sex: Male

DRUGS (4)
  1. KESIMPTA [Suspect]
     Active Substance: OFATUMUMAB
     Indication: Multiple sclerosis
     Dosage: UNK (FIRST ADMINISTRATION, WELL TOLERATED)
     Route: 065
     Dates: start: 202212
  2. KESIMPTA [Suspect]
     Active Substance: OFATUMUMAB
     Dosage: UNK (41 DAYS AFTER THE LAST OFATUMUMAB ADMINISTRATION, HAD BEEN MORE THAN 4 WEEKS PRIOR)
     Route: 065
     Dates: start: 202303
  3. KESIMPTA [Suspect]
     Active Substance: OFATUMUMAB
     Dosage: AGAIN (112 DAYS AFTER THE LAST OFATUMUMAB ADMINISTRATION
     Route: 065
  4. FINGOLIMOD [Suspect]
     Active Substance: FINGOLIMOD
     Indication: Multiple sclerosis
     Dosage: UNK
     Route: 065

REACTIONS (10)
  - Neutropenia [Recovering/Resolving]
  - Dizziness [Recovering/Resolving]
  - Gait disturbance [Recovering/Resolving]
  - Infection [Recovering/Resolving]
  - Pyrexia [Recovering/Resolving]
  - Asthenia [Recovering/Resolving]
  - Vomiting [Recovering/Resolving]
  - Leukopenia [Recovering/Resolving]
  - Lymphopenia [Recovering/Resolving]
  - Fungal infection [Unknown]
